FAERS Safety Report 5460057-6 (Version None)
Quarter: 2007Q3

REPORT INFORMATION
  Report Type: 
  Country: None (occurrence: None)
  Receive Date: 20070919
  Receipt Date: 20070508
  Transmission Date: 20080115
  Serious: No
  Sender: FDA-Public Use
  Company Number: US-ASTRAZENECA-2007UW11020

PATIENT
  Age: 29 Year
  Sex: Male
  Weight: 68 kg

DRUGS (2)
  1. SEROQUEL [Suspect]
     Indication: BIPOLAR DISORDER
     Route: 048
  2. HIGH ENERGY DRINK [Concomitant]

REACTIONS (3)
  - DYSARTHRIA [None]
  - FEELING DRUNK [None]
  - SOMNOLENCE [None]
